FAERS Safety Report 16332178 (Version 1)
Quarter: 2019Q2

REPORT INFORMATION
  Report Type: Spontaneous
  Country: US (occurrence: US)
  Receive Date: 20190520
  Receipt Date: 20190520
  Transmission Date: 20190711
  Serious: Yes (Other)
  Sender: FDA-Public Use
  Company Number: US-HIKMA PHARMACEUTICALS USA INC.-US-H14001-19-03248

PATIENT
  Age: 54 Year
  Sex: Male

DRUGS (3)
  1. FLUOROURACIL. [Suspect]
     Active Substance: FLUOROURACIL
     Indication: METASTASES TO ABDOMINAL CAVITY
     Route: 065
  2. FOLINIC ACID [Suspect]
     Active Substance: LEUCOVORIN
     Indication: METASTASES TO ABDOMINAL CAVITY
     Route: 065
  3. OXALIPLATIN. [Suspect]
     Active Substance: OXALIPLATIN
     Indication: METASTASES TO ABDOMINAL CAVITY
     Route: 065

REACTIONS (11)
  - Odynophagia [Recovering/Resolving]
  - Mucosal toxicity [Recovering/Resolving]
  - Erythema [Recovering/Resolving]
  - Septic shock [Recovering/Resolving]
  - Skin exfoliation [Recovering/Resolving]
  - Dysphagia [Recovering/Resolving]
  - Dysphonia [Recovering/Resolving]
  - Neutropenia [Recovering/Resolving]
  - Weight decreased [Recovering/Resolving]
  - Oesophageal candidiasis [Recovered/Resolved]
  - Recall phenomenon [Recovering/Resolving]
